FAERS Safety Report 19676835 (Version 2)
Quarter: 2021Q4

REPORT INFORMATION
  Report Type: Spontaneous
  Country: CA (occurrence: CA)
  Receive Date: 20210809
  Receipt Date: 20211027
  Transmission Date: 20220303
  Serious: No
  Sender: FDA-Public Use
  Company Number: US-PFIZER INC-202100956760

PATIENT
  Sex: Female

DRUGS (2)
  1. TOZINAMERAN [Interacting]
     Active Substance: TOZINAMERAN
     Indication: COVID-19 immunisation
     Dosage: DOSE 2, SINGLE
  2. DEPO-PROVERA [Interacting]
     Active Substance: MEDROXYPROGESTERONE ACETATE

REACTIONS (2)
  - Heavy menstrual bleeding [Unknown]
  - Potentiating drug interaction [Unknown]
